FAERS Safety Report 25878655 (Version 1)
Quarter: 2025Q4

REPORT INFORMATION
  Report Type: Spontaneous
  Country: JP (occurrence: JP)
  Receive Date: 20251003
  Receipt Date: 20251003
  Transmission Date: 20260117
  Serious: Yes (Hospitalization, Other)
  Sender: ELI LILLY AND COMPANY
  Company Number: JP-ELI_LILLY_AND_COMPANY-JP202509029214

PATIENT
  Age: 34 Year
  Sex: Female

DRUGS (3)
  1. VERZENIO [Suspect]
     Active Substance: ABEMACICLIB
     Indication: Breast cancer
     Route: 048
  2. VERZENIO [Suspect]
     Active Substance: ABEMACICLIB
     Indication: Breast cancer
  3. ETIZOLAM [Concomitant]
     Active Substance: ETIZOLAM

REACTIONS (6)
  - Suicide attempt [Unknown]
  - Pneumonia aspiration [Unknown]
  - Intentional overdose [Unknown]
  - Diarrhoea [Unknown]
  - Cytopenia [Unknown]
  - Vomiting [Unknown]

NARRATIVE: CASE EVENT DATE: 20250925
